FAERS Safety Report 15449747 (Version 2)
Quarter: 2018Q4

REPORT INFORMATION
  Report Type: Spontaneous
  Country: US (occurrence: US)
  Receive Date: 20181001
  Receipt Date: 20181002
  Transmission Date: 20190204
  Serious: No
  Sender: FDA-Public Use
  Company Number: US-009507513-1809USA012725

PATIENT

DRUGS (4)
  1. STERILE DILUENT (WATER) [Concomitant]
     Active Substance: WATER
     Dosage: UNK
  2. PROQUAD [Suspect]
     Active Substance: MEASLES VIRUS STRAIN ENDERS^ ATTENUATED EDMONSTON LIVE ANTIGEN\MUMPS VIRUS STRAIN B LEVEL JERYL LYNN LIVE ANTIGEN\RUBELLA VIRUS STRAIN WISTAR RA 27/3 LIVE ANTIGEN\VARICELLA-ZOSTER VIRUS STRAIN OKA/MERCK LIVE ANTIGEN
     Indication: PROPHYLAXIS
     Dates: start: 20180913, end: 20180913
  3. VARIVAX [Suspect]
     Active Substance: VARICELLA-ZOSTER VIRUS STRAIN OKA/MERCK LIVE ANTIGEN
     Indication: PROPHYLAXIS
     Dates: start: 201809, end: 201809
  4. STERILE DILUENT (WATER) [Suspect]
     Active Substance: WATER
     Indication: PROPHYLAXIS
     Dosage: UNK
     Dates: start: 20180913

REACTIONS (2)
  - Product storage error [Unknown]
  - No adverse event [Unknown]
